FAERS Safety Report 8990832 (Version 1)
Quarter: 2012Q4

REPORT INFORMATION
  Report Type: Spontaneous
  Country: US (occurrence: None)
  Receive Date: 20121226
  Receipt Date: 20121226
  Transmission Date: 20130627
  Serious: Yes (Other)
  Sender: FDA-Public Use
  Company Number: None

PATIENT
  Sex: Female

DRUGS (4)
  1. \ANASTROZOLE TABLET 1 MG ZYDUS PHARMACEUTICALS [Suspect]
     Indication: BREAST CANCER
     Dosage: 1mg Once Daily po
     Route: 048
     Dates: start: 20121127, end: 20121210
  2. HERCEPTIN [Concomitant]
  3. LEVOTHYROXINE [Concomitant]
  4. VITAMIN D [Concomitant]

REACTIONS (3)
  - Nausea [None]
  - Neck pain [None]
  - Sensory disturbance [None]
